FAERS Safety Report 10086955 (Version 2)
Quarter: 2014Q2

REPORT INFORMATION
  Report Type: Spontaneous
  Country: US (occurrence: US)
  Receive Date: 20140418
  Receipt Date: 20140512
  Transmission Date: 20141212
  Serious: Yes (Hospitalization)
  Sender: FDA-Public Use
  Company Number: PHEH2014US007595

PATIENT
  Age: 91 Year
  Sex: Male

DRUGS (9)
  1. EXELON PATCH [Suspect]
     Dosage: 4.6 MG, UNK
     Route: 062
     Dates: start: 20140401
  2. EXELON PATCH [Suspect]
     Dosage: 9.5 MG, UNK
     Route: 062
  3. SINEMET [Concomitant]
     Dosage: 1 DF, UNK
  4. BABY ASPIRIN [Concomitant]
     Dosage: 81 MG, UNK
  5. ATENOLOL [Concomitant]
     Dosage: 25 MG, UNK
  6. ANASTROZOLE [Concomitant]
     Dosage: 1 MG, UNK
  7. BUMETANIDE [Concomitant]
     Dosage: 2 MG, UNK
  8. PAROXETINE HCL [Concomitant]
     Dosage: UNK UKN, UNK
  9. VITAMIN D3 [Concomitant]
     Dosage: UNK UKN, UNK

REACTIONS (6)
  - Vaginal haemorrhage [Unknown]
  - Haemorrhage [Unknown]
  - Fall [Unknown]
  - Urinary tract infection [Unknown]
  - Nervousness [Unknown]
  - Disorientation [Unknown]
